FAERS Safety Report 11302455 (Version 1)
Quarter: 2015Q3

REPORT INFORMATION
  Report Type: Report from Study
  Country: US (occurrence: US)
  Receive Date: 20150723
  Receipt Date: 20150723
  Transmission Date: 20151125
  Serious: Yes (Other)
  Sender: FDA-Public Use
  Company Number: US-BRISTOL-MYERS SQUIBB COMPANY-BMS-2015-046661

PATIENT
  Age: 30 Year
  Sex: Female

DRUGS (4)
  1. TRUVADA [Suspect]
     Active Substance: EMTRICITABINE\TENOFOVIR DISOPROXIL FUMARATE
     Indication: ANTIRETROVIRAL THERAPY
     Dosage: 1 UNK, QD
     Route: 065
     Dates: start: 20150414
  2. ATAZANAVIR SULFATE [Suspect]
     Active Substance: ATAZANAVIR SULFATE
     Indication: ANTIRETROVIRAL THERAPY
     Dosage: 300 UNK, QD
     Route: 065
     Dates: start: 20150414
  3. NORVIR [Suspect]
     Active Substance: RITONAVIR
     Indication: ANTIRETROVIRAL THERAPY
     Dosage: 100 UNK, QD
     Route: 065
     Dates: start: 20150414
  4. TIVICAY [Suspect]
     Active Substance: DOLUTEGRAVIR SODIUM
     Indication: ANTIRETROVIRAL THERAPY
     Dosage: 50 UNK, QD
     Route: 065
     Dates: start: 20150414

REACTIONS (2)
  - Abortion induced [Unknown]
  - Maternal exposure during pregnancy [Recovered/Resolved]

NARRATIVE: CASE EVENT DATE: 20150424
